FAERS Safety Report 18769761 (Version 2)
Quarter: 2021Q1

REPORT INFORMATION
  Report Type: Spontaneous
  Country: US (occurrence: US)
  Receive Date: 20210121
  Receipt Date: 20210128
  Transmission Date: 20210419
  Serious: Yes (Death, Life-Threatening, Hospitalization, Other)
  Sender: FDA-Public Use
  Company Number: US-ACCORD-215355

PATIENT
  Age: 79 Year
  Sex: Female

DRUGS (4)
  1. DOXORUBICIN [Concomitant]
     Active Substance: DOXORUBICIN
     Indication: INVASIVE DUCTAL BREAST CARCINOMA
  2. DOXIFLURIDINE [Concomitant]
     Active Substance: DOXIFLURIDINE
     Indication: INVASIVE DUCTAL BREAST CARCINOMA
  3. PACLITAXEL/PACLITAXEL LIPOSOME [Suspect]
     Active Substance: PACLITAXEL
     Indication: INVASIVE DUCTAL BREAST CARCINOMA
  4. CYCLOPHOSPHAMIDE/CYCLOPHOSPHAMIDE MONOHYDRATE [Concomitant]
     Active Substance: CYCLOPHOSPHAMIDE
     Indication: INVASIVE DUCTAL BREAST CARCINOMA

REACTIONS (10)
  - Intestinal perforation [Fatal]
  - Haemodynamic instability [Fatal]
  - Neutropenia [Fatal]
  - Shock [Fatal]
  - Gastrointestinal disorder [Fatal]
  - Intestinal haemorrhage [Fatal]
  - Necrotising colitis [Fatal]
  - Multiple organ dysfunction syndrome [Fatal]
  - Gastrointestinal necrosis [Fatal]
  - Anaemia [Fatal]
